FAERS Safety Report 10620969 (Version 1)
Quarter: 2014Q4

REPORT INFORMATION
  Report Type: Spontaneous
  Country: JP (occurrence: JP)
  Receive Date: 20141203
  Receipt Date: 20141203
  Transmission Date: 20150529
  Serious: Yes (Other)
  Sender: FDA-Public Use
  Company Number: PHHY2014JP153882

PATIENT
  Age: 55 Year
  Sex: Male

DRUGS (2)
  1. IRINOTECAN [Suspect]
     Active Substance: IRINOTECAN
     Indication: LUNG ADENOCARCINOMA STAGE III
     Dosage: 50 MG/M2, QD (DAYS 1 AND 8)
     Route: 065
  2. CISPLATIN. [Suspect]
     Active Substance: CISPLATIN
     Indication: LUNG ADENOCARCINOMA STAGE III
     Dosage: 60 MG/M2, QD (DAY 1)
     Route: 065

REACTIONS (1)
  - Sarcoidosis [Unknown]
